FAERS Safety Report 16238969 (Version 2)
Quarter: 2019Q4

REPORT INFORMATION
  Report Type: Spontaneous
  Country: US (occurrence: US)
  Receive Date: 20190425
  Receipt Date: 20191004
  Transmission Date: 20200122
  Serious: Yes (Other)
  Sender: FDA-Public Use
  Company Number: US-SA-2019SA109048

PATIENT
  Age: 44 Year
  Sex: Female
  Weight: 82 kg

DRUGS (5)
  1. TAXOTERE [Suspect]
     Active Substance: DOCETAXEL
     Indication: BREAST CANCER FEMALE
     Dosage: 20 MG, Q3W
     Route: 042
     Dates: start: 20081009, end: 20081009
  2. TAXOTERE [Suspect]
     Active Substance: DOCETAXEL
     Dosage: 20 MG, Q3W
     Route: 042
     Dates: start: 20090129, end: 20090129
  3. PARAPLATIN [Concomitant]
     Active Substance: CARBOPLATIN
     Indication: BREAST CANCER FEMALE
     Dosage: UNK
     Route: 065
  4. CARBOPLATIN. [Concomitant]
     Active Substance: CARBOPLATIN
     Indication: BREAST CANCER FEMALE
     Dosage: UNK UNK, UNK
     Route: 065
  5. HERCEPTIN [Concomitant]
     Active Substance: TRASTUZUMAB
     Indication: BREAST CANCER FEMALE
     Dosage: UNK UNK, UNK
     Route: 065

REACTIONS (6)
  - Psychological trauma [Unknown]
  - Impaired quality of life [Unknown]
  - Alopecia [Not Recovered/Not Resolved]
  - Pain [Unknown]
  - Anxiety [Unknown]
  - Emotional distress [Unknown]

NARRATIVE: CASE EVENT DATE: 20081109
